FAERS Safety Report 9755770 (Version 1)
Quarter: 2013Q4

REPORT INFORMATION
  Report Type: Spontaneous
  Country: US (occurrence: US)
  Receive Date: 20131213
  Receipt Date: 20131213
  Transmission Date: 20140711
  Serious: No
  Sender: FDA-Public Use
  Company Number: US-GLAXOSMITHKLINE-A1023924A

PATIENT
  Age: 46 Year
  Sex: Male

DRUGS (1)
  1. NICODERM CQ 21MG [Suspect]
     Indication: EX-TOBACCO USER
     Route: 062
     Dates: start: 1998

REACTIONS (6)
  - Palpitations [Recovered/Resolved]
  - Hyperhidrosis [Recovered/Resolved]
  - Dizziness [Recovered/Resolved]
  - Nausea [Recovered/Resolved]
  - Malaise [Recovered/Resolved]
  - Overdose [Recovered/Resolved]
